FAERS Safety Report 8977144 (Version 2)
Quarter: 2013Q1

REPORT INFORMATION
  Report Type: Spontaneous
  Country: US (occurrence: US)
  Receive Date: 20121220
  Receipt Date: 20130116
  Transmission Date: 20140127
  Serious: Yes (Hospitalization)
  Sender: FDA-Public Use
  Company Number: US-ELI_LILLY_AND_COMPANY-US201211006762

PATIENT
  Sex: Female
  Weight: 53.97 kg

DRUGS (6)
  1. EFFIENT [Suspect]
     Indication: STENT PLACEMENT
     Dosage: 5 MG, QD
     Route: 048
     Dates: start: 20120120, end: 201211
  2. METOPROLOL [Concomitant]
     Dosage: 25 MG, BID
  3. THYROID [Concomitant]
     Dosage: UNK
  4. ASPIRIN [Concomitant]
     Dosage: 81 MG, QD
  5. RAMELTEON [Concomitant]
     Dosage: 8 MG, QD
     Route: 048
  6. CO Q10 [Concomitant]
     Dosage: 400 MG, QD
     Route: 048

REACTIONS (10)
  - Wrong technique in drug usage process [Recovered/Resolved]
  - Drug dispensing error [Recovered/Resolved]
  - Incorrect storage of drug [Recovered/Resolved]
  - Throat irritation [Unknown]
  - Post procedural oedema [Unknown]
  - Post procedural haematoma [Unknown]
  - Tooth abscess [Unknown]
  - Hypertension [Unknown]
  - Breast mass [Not Recovered/Not Resolved]
  - Cough [Recovered/Resolved]
